FAERS Safety Report 8768485 (Version 4)
Quarter: 2013Q2

REPORT INFORMATION
  Report Type: Report from Study
  Country: JP (occurrence: JP)
  Receive Date: 20120904
  Receipt Date: 20130619
  Transmission Date: 20140414
  Serious: Yes (Other)
  Sender: FDA-Public Use
  Company Number: JP-009507513-2012SP022476

PATIENT
  Age: 42 Year
  Sex: Male
  Weight: 82 kg

DRUGS (16)
  1. PEGINTRON [Suspect]
     Indication: CHRONIC HEPATITIS C
     Dosage: 0.74 MICROGRAM PER KILOGRAM, QW
     Route: 058
     Dates: start: 20120214, end: 20120228
  2. PEGINTRON [Suspect]
     Dosage: 0.43 MICROGRAM PER KILOGRAM, QW
     Route: 058
     Dates: start: 20120308, end: 20120322
  3. PEGINTRON [Suspect]
     Dosage: 0.74 MICROGRAM PER KILOGRAM, QW
     Route: 058
     Dates: start: 20120329, end: 20120503
  4. PEGINTRON [Suspect]
     Dosage: 0.76 MICROGRAM PER KILOGRAM
     Route: 058
     Dates: start: 20120510, end: 20120614
  5. PEGINTRON [Suspect]
     Dosage: 1 MICROGRAM PER KILOGRAM
     Route: 058
     Dates: start: 20120621, end: 20120628
  6. PEGINTRON [Suspect]
     Dosage: 1.14 MICROGRAM PER KILOGRAM
     Route: 058
     Dates: start: 20120705, end: 20120705
  7. PEGINTRON [Suspect]
     Dosage: 1.28 MICROGRAM PER KILOGRAM
     Route: 058
     Dates: start: 20120712, end: 20120726
  8. REBETOL [Suspect]
     Indication: CHRONIC HEPATITIS C
     Dosage: 800 MG, QD
     Route: 048
     Dates: start: 20120214, end: 20120503
  9. REBETOL [Suspect]
     Dosage: 600 MG, QD
     Route: 048
     Dates: start: 20120504, end: 20120620
  10. REBETOL [Suspect]
     Dosage: 800 MG, QD
     Route: 048
     Dates: start: 20120621, end: 20120704
  11. REBETOL [Suspect]
     Dosage: 600 MG, QD
     Route: 048
     Dates: start: 20120705, end: 20120711
  12. REBETOL [Suspect]
     Dosage: 800 MG, QD
     Route: 048
     Dates: start: 20120712, end: 20120802
  13. TELAVIC [Suspect]
     Indication: CHRONIC HEPATITIS C
     Dosage: 2250 MG, QD
     Route: 048
     Dates: start: 20120214, end: 20120510
  14. URSO [Concomitant]
     Indication: CHRONIC HEPATITIS C
     Dosage: FORMULATION POR (DETAILS UNSPECIFIED)
     Route: 048
     Dates: start: 20100614
  15. MICARDIS [Concomitant]
     Indication: HYPERTENSION
     Dosage: FORMULATION POR (DETAILS UNSPECIFIED)
     Route: 048
     Dates: start: 20110303
  16. REBAMIPIDE [Concomitant]
     Indication: PROPHYLAXIS
     Dosage: FORMULATION POR (DETAILS UNSPECIFIED)
     Route: 048
     Dates: start: 20120214

REACTIONS (3)
  - Platelet count decreased [Recovering/Resolving]
  - Hyperuricaemia [Recovered/Resolved]
  - Anaemia [Recovering/Resolving]
